FAERS Safety Report 4660646-2 (Version None)
Quarter: 2005Q2

REPORT INFORMATION
  Report Type: 
  Country: None (occurrence: None)
  Receive Date: 20050512
  Receipt Date: 20050509
  Transmission Date: 20051028
  Serious: Yes (Death, Other)
  Sender: FDA-Public Use
  Company Number: PHNR2005AU00840

PATIENT
  Age: 52 Year
  Sex: Female

DRUGS (1)
  1. ZOMETA [Suspect]
     Indication: MULTIPLE MYELOMA
     Dosage: 4 MG, ONCE/SINGLE

REACTIONS (4)
  - BLOOD CREATININE INCREASED [None]
  - DEATH [None]
  - DISEASE PROGRESSION [None]
  - HYPERCALCAEMIA [None]
